FAERS Safety Report 8513299-7 (Version None)
Quarter: 2012Q3

REPORT INFORMATION
  Report Type: 
  Country: None (occurrence: None)
  Receive Date: 20120716
  Receipt Date: 20120710
  Transmission Date: 20120928
  Serious: Yes (Other)
  Sender: FDA-Public Use
  Company Number: US-BAYER-2012-068891

PATIENT
  Age: 58 Year
  Sex: Female

DRUGS (6)
  1. BETASERON [Suspect]
     Indication: MULTIPLE SCLEROSIS
     Dosage: UNK
     Route: 058
     Dates: start: 20000602, end: 20040910
  2. ACETAMINOPHEN [Concomitant]
  3. BETASERON [Suspect]
     Dosage: UNK
     Route: 058
     Dates: start: 20091111, end: 20091216
  4. BETASERON [Suspect]
     Dosage: UNK
     Route: 058
     Dates: start: 20041220, end: 20060606
  5. BETASERON [Suspect]
     Dosage: UNK
     Route: 058
     Dates: start: 20100105, end: 20100901
  6. BETASERON [Suspect]
     Dosage: 8 MIU, QOD
     Route: 058
     Dates: start: 20120409

REACTIONS (1)
  - LIP SWELLING [None]
